FAERS Safety Report 8826131 (Version 1)
Quarter: 2012Q4

REPORT INFORMATION
  Report Type: 
  Country: AR (occurrence: AR)
  Receive Date: 20121005
  Receipt Date: 20121005
  Transmission Date: 20130627
  Serious: Yes (Other)
  Sender: FDA-Public Use
  Company Number: PHHY2012AR086862

PATIENT
  Age: 81 None
  Sex: Female

DRUGS (1)
  1. DIOVAN D [Suspect]
     Indication: BLOOD PRESSURE
     Dosage: 1 DF, (160 mg valsartan/12.5 mg hydrochlorothiazide) daily

REACTIONS (6)
  - Fall [Recovering/Resolving]
  - Upper limb fracture [Recovering/Resolving]
  - Hand fracture [Recovering/Resolving]
  - Osteoporosis [Recovering/Resolving]
  - Chest injury [Recovering/Resolving]
  - Chest pain [Recovering/Resolving]
